FAERS Safety Report 4451120-7 (Version None)
Quarter: 2004Q3

REPORT INFORMATION
  Report Type: 
  Country: None (occurrence: None)
  Receive Date: 20040913
  Receipt Date: 20040721
  Transmission Date: 20050211
  Serious: No
  Sender: FDA-Public Use
  Company Number: 2004-BP-06035BP

PATIENT
  Sex: Female

DRUGS (6)
  1. SPIRIVA [Suspect]
     Indication: BRONCHIOLITIS
     Dosage: 18 MCG (18 MCG); IH
     Route: 055
     Dates: start: 20040628
  2. SPIRIVA [Suspect]
     Indication: PNEUMONIA
     Dosage: 18 MCG (18 MCG); IH
     Route: 055
     Dates: start: 20040628
  3. FOSAMAX [Concomitant]
  4. ACETYLSALICYLIC ACID SRT [Concomitant]
  5. PEPCID [Concomitant]
  6. ADVAIR (SERETIDE MITE) [Concomitant]

REACTIONS (3)
  - DRY MOUTH [None]
  - DRY THROAT [None]
  - ORAL DISCOMFORT [None]
